FAERS Safety Report 5518918-5 (Version None)
Quarter: 2007Q4

REPORT INFORMATION
  Report Type: 
  Country: None (occurrence: None)
  Receive Date: 20071114
  Receipt Date: 20071114
  Transmission Date: 20080405
  Serious: Yes (Hospitalization)
  Sender: FDA-Public Use
  Company Number: None

PATIENT
  Age: 61 Year
  Sex: Female
  Weight: 67.586 kg

DRUGS (8)
  1. GINGER LEMON FLAVORED PHOSPHA-SODA(FLEET) [Suspect]
     Indication: COLONOSCOPY
     Dosage: 1.5ML X 2 PO
     Route: 048
     Dates: start: 20030928, end: 20030929
  2. PREDNISONE TAB [Concomitant]
  3. METHOTREXATE [Concomitant]
  4. LEUCOVORIN CALCIUM [Concomitant]
  5. FOLIC ACID [Concomitant]
  6. PRILOSEC [Concomitant]
  7. REMICADE [Concomitant]
  8. PREMARIN [Concomitant]

REACTIONS (4)
  - ATRIAL FIBRILLATION [None]
  - BLOOD POTASSIUM DECREASED [None]
  - NAUSEA [None]
  - SYNCOPE [None]
